FAERS Safety Report 22108171 (Version 1)
Quarter: 2023Q1

REPORT INFORMATION
  Report Type: Spontaneous
  Country: US (occurrence: US)
  Receive Date: 20230317
  Receipt Date: 20230317
  Transmission Date: 20230417
  Serious: No
  Sender: FDA-Public Use
  Company Number: US-SA-SAC20230316001318

PATIENT
  Sex: Male
  Weight: 72.562 kg

DRUGS (6)
  1. DUPIXENT [Suspect]
     Active Substance: DUPILUMAB
     Indication: Dermatitis atopic
     Dosage: 300 MG, QOW
     Route: 058
     Dates: start: 20220706
  2. RINVOQ [Concomitant]
     Active Substance: UPADACITINIB
  3. CLOBETASOL PROPIONATE [Concomitant]
     Active Substance: CLOBETASOL PROPIONATE
  4. BETAMETHASONE DIPROPIONATE, AUGMENTED [Concomitant]
  5. LAGEVRIO [Concomitant]
     Active Substance: MOLNUPIRAVIR
  6. OPZELURA [Concomitant]
     Active Substance: RUXOLITINIB PHOSPHATE

REACTIONS (1)
  - Drug ineffective [Unknown]
